FAERS Safety Report 5230797-2 (Version None)
Quarter: 2007Q1

REPORT INFORMATION
  Report Type: 
  Country: None (occurrence: None)
  Receive Date: 20070202
  Receipt Date: 20070119
  Transmission Date: 20070707
  Serious: Yes (Death, Hospitalization)
  Sender: FDA-Public Use
  Company Number: 2007000123

PATIENT
  Age: 65 Year
  Sex: Male

DRUGS (2)
  1. ERLOTINIB (TABLET) (ERLOTINIB HCL) [Suspect]
     Indication: BRONCHIAL CARCINOMA
     Dosage: QD, ORAL
     Route: 048
     Dates: start: 20061004, end: 20061012
  2. ERLOTINIB (TABLET) (ERLOTINIB HCL) [Suspect]
     Indication: LUNG NEOPLASM MALIGNANT
     Dosage: QD, ORAL
     Route: 048
     Dates: start: 20061004, end: 20061012

REACTIONS (2)
  - CONCOMITANT DISEASE AGGRAVATED [None]
  - PLEURAL EFFUSION [None]
